FAERS Safety Report 5040261-1 (Version None)
Quarter: 2006Q2

REPORT INFORMATION
  Report Type: 
  Country: None (occurrence: None)
  Receive Date: 20060630
  Receipt Date: 20060620
  Transmission Date: 20061013
  Serious: Yes (Other)
  Sender: FDA-Public Use
  Company Number: PHBS2006FR09245

PATIENT
  Age: 67 Year
  Sex: Female

DRUGS (2)
  1. NEORAL [Suspect]
     Indication: LIVER TRANSPLANT
     Dosage: 50 MG PER DAY
  2. PREDNISONE (NGX) [Suspect]
     Indication: LIVER TRANSPLANT
     Dosage: 10 MG PER DAY

REACTIONS (7)
  - ALANINE AMINOTRANSFERASE INCREASED [None]
  - ASPARTATE AMINOTRANSFERASE INCREASED [None]
  - ECCHYMOSIS [None]
  - KERATOSIS FOLLICULAR [None]
  - PURPURA [None]
  - VITAMIN C DECREASED [None]
  - VITAMIN C DEFICIENCY [None]
